APPROVED DRUG PRODUCT: TRIFLUOPERAZINE HYDROCHLORIDE
Active Ingredient: TRIFLUOPERAZINE HYDROCHLORIDE
Strength: EQ 2MG BASE
Dosage Form/Route: TABLET;ORAL
Application: A087613 | Product #001
Applicant: IVAX PHARMACEUTICALS INC
Approved: Nov 19, 1982 | RLD: No | RS: No | Type: DISCN